FAERS Safety Report 8311438-4 (Version None)
Quarter: 2012Q1

REPORT INFORMATION
  Report Type: 
  Country: None (occurrence: None)
  Receive Date: 20120315
  Receipt Date: 20101020
  Transmission Date: 20120608
  Serious: No
  Sender: FDA-Public Use
  Company Number: PHHY2010US71449

PATIENT
  Sex: Female

DRUGS (1)
  1. GILENYA [Suspect]
     Dates: start: 20100921

REACTIONS (2)
  - URINARY TRACT INFECTION [None]
  - UPPER RESPIRATORY TRACT INFECTION [None]
